FAERS Safety Report 5202261-8 (Version None)
Quarter: 2007Q1

REPORT INFORMATION
  Report Type: 
  Country: None (occurrence: None)
  Receive Date: 20070109
  Receipt Date: 20070104
  Transmission Date: 20070707
  Serious: Yes (Other)
  Sender: FDA-Public Use
  Company Number: US-GLAXOSMITHKLINE-A0634580A

PATIENT
  Age: 32 Year
  Sex: Female

DRUGS (1)
  1. PAXIL [Suspect]
     Indication: ANXIETY
     Route: 048
     Dates: start: 19950101

REACTIONS (10)
  - ANXIETY [None]
  - CRYING [None]
  - DRUG DEPENDENCE [None]
  - DRUG WITHDRAWAL SYNDROME [None]
  - FEELING ABNORMAL [None]
  - LOSS OF LIBIDO [None]
  - SOMNOLENCE [None]
  - THINKING ABNORMAL [None]
  - WEIGHT INCREASED [None]
  - WEIGHT LOSS POOR [None]
